FAERS Safety Report 4904313-6 (Version None)
Quarter: 2006Q1

REPORT INFORMATION
  Report Type: 
  Country: None (occurrence: None)
  Receive Date: 20060208
  Receipt Date: 20050822
  Transmission Date: 20060701
  Serious: No
  Sender: FDA-Public Use
  Company Number: US-GLAXOSMITHKLINE-A0571253A

PATIENT
  Age: 54 Year
  Sex: Female

DRUGS (4)
  1. PAXIL [Suspect]
     Indication: DEPRESSION
     Dosage: 20MG PER DAY
     Route: 048
     Dates: start: 19980101
  2. ESTROGEN [Concomitant]
  3. ACIPHEX [Concomitant]
  4. PHENERGAN [Concomitant]

REACTIONS (2)
  - COELIAC DISEASE [None]
  - NAUSEA [None]
